FAERS Safety Report 4783642-3 (Version None)
Quarter: 2005Q3

REPORT INFORMATION
  Report Type: 
  Country: None (occurrence: None)
  Receive Date: 20050928
  Receipt Date: 20050922
  Transmission Date: 20060218
  Serious: Yes (Hospitalization)
  Sender: FDA-Public Use
  Company Number: 2005RL000124

PATIENT
  Age: 85 Year
  Sex: Male

DRUGS (2)
  1. PROPAFENONE HCL [Suspect]
     Indication: SUPRAVENTRICULAR EXTRASYSTOLES
     Dosage: 150 MG;QD; PO
     Route: 048
     Dates: start: 20050504, end: 20050708
  2. ACETYLSALICYLATE LYSINE [Concomitant]

REACTIONS (1)
  - JAUNDICE [None]
